FAERS Safety Report 8510980-0 (Version None)
Quarter: 2012Q3

REPORT INFORMATION
  Report Type: 
  Country: None (occurrence: None)
  Receive Date: 20120710
  Receipt Date: 20120710
  Transmission Date: 20120928
  Serious: Yes (Other)
  Sender: FDA-Public Use
  Company Number: None

PATIENT
  Age: 68 Year
  Sex: Female

DRUGS (1)
  1. SERTRALINE HYDROCHLORIDE [Suspect]
     Indication: ANXIETY
     Dosage: 25MG ONCE DAILY PO
     Route: 048
     Dates: start: 20110720, end: 20110730

REACTIONS (1)
  - GASTROOESOPHAGEAL REFLUX DISEASE [None]
